FAERS Safety Report 8452327-4 (Version None)
Quarter: 2012Q2

REPORT INFORMATION
  Report Type: 
  Country: None (occurrence: None)
  Receive Date: 20120620
  Receipt Date: 20120405
  Transmission Date: 20120825
  Serious: No
  Sender: FDA-Public Use
  Company Number: US-VERTEX PHARMACEUTICALS INC.-AE-2012-004938

PATIENT
  Sex: Male
  Weight: 108.05 kg

DRUGS (11)
  1. LITHIUM [Concomitant]
     Indication: BIPOLAR DISORDER
     Route: 048
  2. AMBIEN [Concomitant]
     Route: 048
  3. INCIVEK [Suspect]
     Indication: HEPATITIS C
     Route: 048
     Dates: start: 20120201
  4. PEGASYS [Concomitant]
     Indication: HEPATITIS C
     Route: 058
     Dates: start: 20120201
  5. MORPHINE [Concomitant]
     Indication: PAIN
     Route: 048
  6. SEROQUEL [Concomitant]
     Indication: SCHIZOPHRENIA
     Route: 048
  7. MORPHINE PUMP [Concomitant]
     Indication: BACK PAIN
  8. VITAMIN B-12 [Concomitant]
  9. RIBAVIRIN [Concomitant]
     Indication: HEPATITIS C
     Route: 048
     Dates: start: 20120201
  10. XANAX [Concomitant]
     Indication: ANXIETY
     Route: 048
  11. RISPERDAL [Concomitant]
     Indication: SCHIZOPHRENIA
     Route: 048

REACTIONS (1)
  - INCORRECT DRUG ADMINISTRATION DURATION [None]
